FAERS Safety Report 8183911-3 (Version None)
Quarter: 2012Q1

REPORT INFORMATION
  Report Type: 
  Country: None (occurrence: None)
  Receive Date: 20120305
  Receipt Date: 20120229
  Transmission Date: 20120608
  Serious: Yes (Death)
  Sender: FDA-Public Use
  Company Number: IT-ROCHE-1044242

PATIENT
  Age: 4 Year
  Sex: Male

DRUGS (2)
  1. ROCEPHIN [Suspect]
     Indication: BRONCHITIS
     Route: 051
  2. BETAMETHASONE SODIUM PHOSPHATE [Suspect]
     Indication: BRONCHITIS
     Route: 051

REACTIONS (1)
  - RESPIRATORY DISTRESS [None]
